FAERS Safety Report 24050412 (Version 1)
Quarter: 2024Q3

REPORT INFORMATION
  Report Type: Spontaneous
  Country: JP (occurrence: JP)
  Receive Date: 20240704
  Receipt Date: 20240704
  Transmission Date: 20241016
  Serious: Yes (Other)
  Sender: BRISTOL MYERS SQUIBB
  Company Number: JP-BRISTOL-MYERS SQUIBB COMPANY-2024-105928

PATIENT

DRUGS (4)
  1. ELIQUIS [Suspect]
     Active Substance: APIXABAN
     Indication: Embolism venous
     Dosage: DAILY DOSE 20MG
  2. ELIQUIS [Suspect]
     Active Substance: APIXABAN
     Dosage: DAILY DOSE 10MG FOR THREE MONTHS
  3. ELIQUIS [Suspect]
     Active Substance: APIXABAN
     Dosage: DAILY DOSE 5MG
     Dates: end: 20221130
  4. ELIQUIS [Suspect]
     Active Substance: APIXABAN
     Dosage: DAILY DOSE 5MG
     Dates: end: 20231014

REACTIONS (4)
  - Off label use [Unknown]
  - Haemorrhoids [Unknown]
  - Embolism venous [Unknown]
  - Treatment noncompliance [Unknown]

NARRATIVE: CASE EVENT DATE: 20231014
